FAERS Safety Report 5455153-3 (Version None)
Quarter: 2007Q3

REPORT INFORMATION
  Report Type: 
  Country: None (occurrence: None)
  Receive Date: 20070914
  Receipt Date: 20070903
  Transmission Date: 20080115
  Serious: Yes (Other)
  Sender: FDA-Public Use
  Company Number: GXKR2007GB07693

PATIENT
  Age: 79 Year
  Sex: Female

DRUGS (3)
  1. BISOPROLOL FUMARATE [Suspect]
  2. ACETYLSALICYLIC ACID SRT [Concomitant]
  3. CLOPIDOGREL [Concomitant]

REACTIONS (2)
  - ACUTE GENERALISED EXANTHEMATOUS PUSTULOSIS [None]
  - PYREXIA [None]
